FAERS Safety Report 24229559 (Version 2)
Quarter: 2024Q3

REPORT INFORMATION
  Report Type: Report from Study
  Country: IT (occurrence: IT)
  Receive Date: 20240820
  Receipt Date: 20240903
  Transmission Date: 20241017
  Serious: Yes (Other)
  Sender: TEVA
  Company Number: IT-TEVA-VS-3233431

PATIENT

DRUGS (3)
  1. SORAFENIB [Suspect]
     Active Substance: SORAFENIB
     Indication: Acute myeloid leukaemia
     Route: 065
  2. SORAFENIB [Suspect]
     Active Substance: SORAFENIB
     Indication: Acute myeloid leukaemia
     Dosage: 200MG EVERY OTHER DAY
     Route: 065
  3. RAPAMYCIN [Concomitant]
     Active Substance: SIROLIMUS
     Indication: Prophylaxis against graft versus host disease
     Route: 065

REACTIONS (1)
  - Gastrointestinal toxicity [Unknown]
